FAERS Safety Report 6123790-9 (Version None)
Quarter: 2009Q1

REPORT INFORMATION
  Report Type: 
  Country: None (occurrence: None)
  Receive Date: 20090319
  Receipt Date: 20090306
  Transmission Date: 20090719
  Serious: Yes (Death, Other)
  Sender: FDA-Public Use
  Company Number: US-ROCHE-614905

PATIENT
  Sex: Female

DRUGS (1)
  1. CAPECITABINE [Suspect]
     Dosage: DOSE: 1500 MG IN AM AND 1000 MG IN PM; ONE WEEK ON AND ONE WEEK OFF
     Route: 065
     Dates: start: 20080520, end: 20080827

REACTIONS (2)
  - CARDIO-RESPIRATORY ARREST [None]
  - ORGAN FAILURE [None]
